FAERS Safety Report 25929768 (Version 1)
Quarter: 2025Q4

REPORT INFORMATION
  Report Type: Spontaneous
  Country: US (occurrence: US)
  Receive Date: 20251016
  Receipt Date: 20251016
  Transmission Date: 20260117
  Serious: No
  Sender: MERCK SHARP & DOHME LLC
  Company Number: US-009507513-2332667

PATIENT
  Age: 64 Year
  Sex: Male

DRUGS (1)
  1. KEYTRUDA [Suspect]
     Active Substance: PEMBROLIZUMAB
     Dosage: STRENGTH OF 100 MG, EVERY MONTH OF 4 TREATMENTS ON AND OFF
     Dates: start: 2024, end: 202505

REACTIONS (2)
  - Morphoea [Unknown]
  - Onychomycosis [Unknown]

NARRATIVE: CASE EVENT DATE: 20250501
